FAERS Safety Report 6856275-2 (Version None)
Quarter: 2010Q3

REPORT INFORMATION
  Report Type: 
  Country: None (occurrence: None)
  Receive Date: 20100719
  Receipt Date: 20100709
  Transmission Date: 20110219
  Serious: Yes (Other)
  Sender: FDA-Public Use
  Company Number: PHHY2010US38219

PATIENT
  Sex: Male

DRUGS (2)
  1. FOCALIN XR [Suspect]
     Indication: AGGRESSION
     Dosage: 5 MG, UNK
     Dates: start: 20100401
  2. FOCALIN XR [Suspect]
     Dosage: 10 MG
     Dates: end: 20100524

REACTIONS (2)
  - ABNORMAL BEHAVIOUR [None]
  - HALLUCINATION [None]
